FAERS Safety Report 13262680 (Version 1)
Quarter: 2017Q1

REPORT INFORMATION
  Report Type: Report from Study
  Country: US (occurrence: US)
  Receive Date: 20170223
  Receipt Date: 20170223
  Transmission Date: 20170428
  Serious: Yes (Death, Hospitalization)
  Sender: FDA-Public Use
  Company Number: US-ROCHE-1471610

PATIENT
  Age: 58 Year
  Sex: Female

DRUGS (8)
  1. AVASTIN [Suspect]
     Active Substance: BEVACIZUMAB
     Indication: METASTASES TO LIVER
  2. CORTEF [Concomitant]
     Active Substance: HYDROCORTISONE
  3. OXALIPLATIN. [Concomitant]
     Active Substance: OXALIPLATIN
  4. XELODA [Suspect]
     Active Substance: CAPECITABINE
     Indication: COLON CANCER STAGE IV
     Dosage: 7 TABLETS/DAY, 14 DAYS ON/7DAYS OFF
     Route: 065
  5. CYTOMEL [Concomitant]
     Active Substance: LIOTHYRONINE SODIUM
  6. SYNTHROID [Concomitant]
     Active Substance: LEVOTHYROXINE SODIUM
  7. AVASTIN [Suspect]
     Active Substance: BEVACIZUMAB
     Indication: COLON CANCER
     Route: 065
  8. CAPOX [Concomitant]

REACTIONS (11)
  - Vomiting [Unknown]
  - Colitis [Recovered/Resolved]
  - Pain [Unknown]
  - Overdose [Unknown]
  - Diarrhoea [Unknown]
  - Death [Fatal]
  - Blood potassium decreased [Unknown]
  - Urinary tract infection [Unknown]
  - Nausea [Unknown]
  - Weight decreased [Recovered/Resolved]
  - Blood magnesium decreased [Unknown]

NARRATIVE: CASE EVENT DATE: 201504
